FAERS Safety Report 15299614 (Version 1)
Quarter: 2018Q3

REPORT INFORMATION
  Report Type: Spontaneous
  Country: IT (occurrence: IT)
  Receive Date: 20180821
  Receipt Date: 20180821
  Transmission Date: 20181010
  Serious: Yes (Hospitalization)
  Sender: FDA-Public Use
  Company Number: IT-TEVA-2018-IT-944470

PATIENT
  Age: 82 Year

DRUGS (9)
  1. BENEXOL [Concomitant]
     Active Substance: CYANOCOBALAMIN\PYRIDOXINE\THIAMINE
  2. BENTELAN [Concomitant]
     Active Substance: BETAMETHASONE SODIUM PHOSPHATE
  3. ARTROSILENE [Concomitant]
     Active Substance: KETOPROFEN
  4. NORVASC [Concomitant]
     Active Substance: AMLODIPINE BESYLATE
  5. XANAX [Concomitant]
     Active Substance: ALPRAZOLAM
  6. LAROXYL [Concomitant]
     Active Substance: AMITRIPTYLINE HYDROCHLORIDE
  7. SOTALEX [Concomitant]
     Active Substance: SOTALOL
  8. AMOXICILLIN. [Suspect]
     Active Substance: AMOXICILLIN
     Indication: BRONCHITIS
     Dates: start: 20180608, end: 20180611
  9. PLAUNAZIDE [Concomitant]
     Active Substance: HYDROCHLOROTHIAZIDE\OLMESARTAN MEDOXOMIL

REACTIONS (2)
  - Diarrhoea [Unknown]
  - Abdominal tenderness [Unknown]

NARRATIVE: CASE EVENT DATE: 20180611
